FAERS Safety Report 19803781 (Version 1)
Quarter: 2021Q3

REPORT INFORMATION
  Report Type: Spontaneous
  Country: US (occurrence: US)
  Receive Date: 20210902
  Receipt Date: 20210902
  Transmission Date: 20211014
  Serious: No
  Sender: FDA-Public Use
  Company Number: None

PATIENT
  Age: 53 Year
  Sex: Female

DRUGS (1)
  1. RUXIENCE [Suspect]
     Active Substance: RITUXIMAB-PVVR
     Indication: RHEUMATOID ARTHRITIS
     Dosage: ?          OTHER FREQUENCY:WEEK 0 AND WEEK 2;?
     Route: 042
     Dates: start: 20210811, end: 20210811

REACTIONS (3)
  - Uveitis [None]
  - Pruritus [None]
  - Vision blurred [None]

NARRATIVE: CASE EVENT DATE: 20210811
